FAERS Safety Report 8763227 (Version 1)
Quarter: 2012Q4

REPORT INFORMATION
  Report Type: 
  Country: US (occurrence: US)
  Receive Date: 20120831
  Receipt Date: 20120831
  Transmission Date: 20130627
  Serious: No
  Sender: FDA-Public Use
  Company Number: US-MYLANLABS-2012S1011618

PATIENT
  Sex: Female

DRUGS (1)
  1. CLINDAMYCIN/BENZOYL PEROXIDE GEL [Suspect]
     Route: 061
     Dates: start: 201205, end: 201205

REACTIONS (1)
  - Application site pain [Recovered/Resolved]
